FAERS Safety Report 8021473 (Version 3)
Quarter: 2013Q1

REPORT INFORMATION
  Report Type: Report from Study
  Country: SE (occurrence: SE)
  Receive Date: 20110705
  Receipt Date: 20130219
  Transmission Date: 20140127
  Serious: Yes (Hospitalization, Other)
  Sender: FDA-Public Use
  Company Number: SE-ABBOTT-11P-150-0734418-00

PATIENT
  Age: 55 Year
  Sex: Female
  Weight: 59.9 kg

DRUGS (5)
  1. ZEMPLAR CAPSULES [Suspect]
     Indication: RENAL FAILURE CHRONIC
     Dosage: DAILY DOSE: STARTING- 1 MCG
     Route: 048
     Dates: start: 20110421
  2. ZEMPLAR CAPSULES [Suspect]
     Indication: BLOOD PARATHYROID HORMONE INCREASED
  3. ZEMPLAR CAPSULES [Suspect]
     Indication: PROPHYLAXIS
  4. ZEMPLAR CAPSULES [Suspect]
     Indication: RENAL DISORDER
  5. FRAGMIN [Concomitant]
     Indication: THROMBOSIS PROPHYLAXIS

REACTIONS (1)
  - Appendicitis [Recovered/Resolved]
